FAERS Safety Report 14920230 (Version 1)
Quarter: 2018Q2

REPORT INFORMATION
  Report Type: Spontaneous
  Country: US (occurrence: US)
  Receive Date: 20180502
  Receipt Date: 20180502
  Transmission Date: 20180711
  Serious: Yes (Disabling)
  Sender: FDA-Public Use
  Company Number: None

PATIENT
  Age: 10 Year
  Sex: Female
  Weight: 24.75 kg

DRUGS (2)
  1. SYNTHROID [Concomitant]
     Active Substance: LEVOTHYROXINE SODIUM
  2. EQUATE CLEAR LAX [Suspect]
     Active Substance: POLYETHYLENE GLYCOL 3350
     Indication: CONSTIPATION
     Dosage: ?          QUANTITY:1 CAPFUL 17 G;?
     Route: 048

REACTIONS (7)
  - Personality change [None]
  - Fear [None]
  - Anxiety [None]
  - Anal incontinence [None]
  - Urinary incontinence [None]
  - Anger [None]
  - Depressed mood [None]

NARRATIVE: CASE EVENT DATE: 20150505
